FAERS Safety Report 8121681-5 (Version None)
Quarter: 2012Q1

REPORT INFORMATION
  Report Type: 
  Country: None (occurrence: None)
  Receive Date: 20120208
  Receipt Date: 20120125
  Transmission Date: 20120608
  Serious: Yes (Other)
  Sender: FDA-Public Use
  Company Number: JP-VERTEX PHARMACEUTICALS INC.-AE-2012-001805

PATIENT
  Age: 33 Year
  Sex: Male

DRUGS (3)
  1. TELAVIC (TELAPREVIR) [Suspect]
     Route: 048
     Dates: start: 20120120
  2. RIBAVIRIN [Concomitant]
  3. PEGINTERFERON ALFA-2B [Concomitant]

REACTIONS (1)
  - NEUTROPHIL COUNT DECREASED [None]
